FAERS Safety Report 6365766-2 (Version None)
Quarter: 2009Q3

REPORT INFORMATION
  Report Type: 
  Country: None (occurrence: None)
  Receive Date: 20090919
  Receipt Date: 20090825
  Transmission Date: 20100115
  Serious: Yes (Other)
  Sender: FDA-Public Use
  Company Number: US-ABBOTT-09P-163-0593613-00

PATIENT
  Sex: Female
  Weight: 84.444 kg

DRUGS (11)
  1. HUMIRA [Suspect]
     Indication: PSORIATIC ARTHROPATHY
     Route: 058
     Dates: start: 20081001, end: 20090418
  2. SULFA [Suspect]
     Indication: RADIATION SKIN INJURY
     Dates: start: 20090501, end: 20090501
  3. LISINOPRIL [Concomitant]
     Indication: HYPERTENSION
     Dosage: 20/12.5
     Route: 048
  4. CELEBREX [Concomitant]
     Indication: ARTHRITIS
     Route: 048
  5. SIMVASTATIN [Concomitant]
     Indication: BLOOD CHOLESTEROL INCREASED
     Dosage: 1/2 TAB DAILY
     Route: 048
  6. ACTONEL [Concomitant]
     Indication: OSTEOPOROSIS
  7. PREVACID [Concomitant]
     Indication: GASTROOESOPHAGEAL REFLUX DISEASE
     Route: 048
  8. RANITIDINE [Concomitant]
     Indication: GASTROOESOPHAGEAL REFLUX DISEASE
     Route: 048
  9. LEUKOVORIN [Concomitant]
     Indication: MINERAL SUPPLEMENTATION
     Dates: end: 20090401
  10. FOLIC ACID [Concomitant]
     Indication: VITAMIN SUPPLEMENTATION
     Dates: end: 20090401
  11. METHOTREXATE [Concomitant]
     Indication: PSORIATIC ARTHROPATHY
     Route: 058
     Dates: end: 20090401

REACTIONS (7)
  - ANAL CANCER STAGE II [None]
  - INJECTION SITE PAIN [None]
  - NAUSEA [None]
  - RADIATION SKIN INJURY [None]
  - RECTAL HAEMORRHAGE [None]
  - SKIN DISCOLOURATION [None]
  - VOMITING [None]
